FAERS Safety Report 11088785 (Version 2)
Quarter: 2015Q2

REPORT INFORMATION
  Report Type: Report from Study
  Country: CA (occurrence: CA)
  Receive Date: 20150504
  Receipt Date: 20150508
  Transmission Date: 20150821
  Serious: Yes (Hospitalization, Other)
  Sender: FDA-Public Use
  Company Number: CA-GILEAD-2015-0151381

PATIENT
  Age: 34 Year
  Sex: Male

DRUGS (1)
  1. AZTREONAM LYSINE [Suspect]
     Active Substance: AZTREONAM LYSINE
     Indication: CYSTIC FIBROSIS
     Dosage: UNK
     Route: 055
     Dates: start: 2014

REACTIONS (4)
  - Respiratory failure [Unknown]
  - Lung infection [Unknown]
  - Infective pulmonary exacerbation of cystic fibrosis [Unknown]
  - Underdose [Unknown]
